FAERS Safety Report 10513870 (Version 1)
Quarter: 2014Q4

REPORT INFORMATION
  Report Type: Spontaneous
  Country: US (occurrence: US)
  Receive Date: 20141013
  Receipt Date: 20141013
  Transmission Date: 20150528
  Serious: Yes (Other)
  Sender: FDA-Public Use
  Company Number: US-PFIZER INC-2014276498

PATIENT
  Age: 26 Year
  Sex: Female
  Weight: 65.76 kg

DRUGS (2)
  1. EFFEXOR [Suspect]
     Active Substance: VENLAFAXINE HYDROCHLORIDE
     Indication: DEPRESSION
  2. EFFEXOR [Suspect]
     Active Substance: VENLAFAXINE HYDROCHLORIDE
     Indication: ANXIETY
     Dosage: 300 MG, DAILY (75 MG 4 TABLETS EVERY MORNING)
     Dates: start: 20140913

REACTIONS (6)
  - Muscle twitching [Unknown]
  - Panic attack [Unknown]
  - Loss of consciousness [Unknown]
  - Muscle spasms [Unknown]
  - Hyperventilation [Unknown]
  - Movement disorder [Unknown]

NARRATIVE: CASE EVENT DATE: 20140921
